FAERS Safety Report 4281005-0 (Version None)
Quarter: 2004Q1

REPORT INFORMATION
  Report Type: 
  Country: None (occurrence: None)
  Receive Date: 20040122
  Receipt Date: 20031114
  Transmission Date: 20041129
  Serious: No
  Sender: FDA-Public Use
  Company Number: 2003177434US

PATIENT
  Age: 43 Year
  Sex: Male

DRUGS (4)
  1. SOMAVERT [Suspect]
     Indication: ACROMEGALY
     Dosage: 10 MG, QD, SUBCUTANEOUS
     Route: 058
     Dates: start: 20030808
  2. SYNTHROID [Concomitant]
  3. CORTEF [Concomitant]
  4. TESTOSTERONE ENANTATE [Concomitant]

REACTIONS (1)
  - BLOOD SODIUM DECREASED [None]
